FAERS Safety Report 20175376 (Version 1)
Quarter: 2021Q4

REPORT INFORMATION
  Report Type: Spontaneous
  Country: CN (occurrence: CN)
  Receive Date: 20211213
  Receipt Date: 20211213
  Transmission Date: 20220304
  Serious: Yes (Life-Threatening, Hospitalization, Disabling)
  Sender: FDA-Public Use
  Company Number: CN-BAXTER-2021BAX038905

PATIENT
  Age: 34 Year
  Sex: Male
  Weight: 73 kg

DRUGS (7)
  1. CYCLOPHOSPHAMIDE [Suspect]
     Active Substance: CYCLOPHOSPHAMIDE
     Indication: Acute lymphocytic leukaemia (in remission)
     Dosage: SALINE 500ML + CYCLOPHOSPHAMIDE 380MG VIA INTRAVENOUS DRIP Q12H D2-4
     Route: 041
     Dates: start: 20211030, end: 20211102
  2. CYTARABINE [Suspect]
     Active Substance: CYTARABINE
     Indication: Acute lymphocytic leukaemia (in remission)
     Dosage: SALINE 500ML + CYTARABINE 3.8G VIA INTRAVENOUS DRIP Q12H D5
     Route: 041
     Dates: start: 20211102, end: 20211103
  3. PEGASPARGASE [Suspect]
     Active Substance: PEGASPARGASE
     Indication: Acute lymphocytic leukaemia (in remission)
     Dosage: PEGASPARGASE 3750U D6
     Route: 030
     Dates: start: 20211103, end: 20211104
  4. METHOTREXATE [Suspect]
     Active Substance: METHOTREXATE
     Indication: Acute lymphocytic leukaemia (in remission)
     Dosage: SALINE 500ML + METHOTREXATE 5G INTRAVENOUS DRIP D1
     Route: 041
     Dates: start: 20211029, end: 20211030
  5. SODIUM CHLORIDE [Suspect]
     Active Substance: SODIUM CHLORIDE
     Indication: Medication dilution
     Route: 041
     Dates: start: 20211029, end: 20211030
  6. SODIUM CHLORIDE [Suspect]
     Active Substance: SODIUM CHLORIDE
     Route: 041
     Dates: start: 20211030, end: 20211102
  7. SODIUM CHLORIDE [Suspect]
     Active Substance: SODIUM CHLORIDE
     Route: 041
     Dates: start: 20211102, end: 20211103

REACTIONS (6)
  - Myelosuppression [Recovered/Resolved]
  - Septic shock [Recovered/Resolved]
  - Amylase increased [Recovered/Resolved]
  - Diarrhoea [Unknown]
  - Abdominal pain [Recovered/Resolved]
  - Discomfort [Unknown]

NARRATIVE: CASE EVENT DATE: 20211108
